FAERS Safety Report 14237444 (Version 2)
Quarter: 2018Q1

REPORT INFORMATION
  Report Type: Not Available
  Country: US (occurrence: US)
  Receive Date: 20171129
  Receipt Date: 20180105
  Transmission Date: 20180508
  Serious: Yes (Death, Hospitalization)
  Sender: FDA-Public Use
  Company Number: US-NEUROCRINE BIOSCIENCES INC.-2017NBI01522

PATIENT
  Age: 56 Year
  Sex: Male

DRUGS (19)
  1. FETZIMA [Concomitant]
     Active Substance: LEVOMILNACIPRAN HYDROCHLORIDE
     Indication: BIPOLAR DISORDER
  2. LYRICA [Concomitant]
     Active Substance: PREGABALIN
  3. NOVOLOG [Concomitant]
     Active Substance: INSULIN ASPART
  4. INGREZZA [Suspect]
     Active Substance: VALBENAZINE
     Route: 048
     Dates: start: 20170808, end: 20171103
  5. ISOSORBIDE. [Concomitant]
     Active Substance: ISOSORBIDE
  6. LAMOTRIGINE. [Concomitant]
     Active Substance: LAMOTRIGINE
     Indication: BIPOLAR DISORDER
  7. METOPROLOL. [Concomitant]
     Active Substance: METOPROLOL
  8. PANTOPRAZOLE [Concomitant]
     Active Substance: PANTOPRAZOLE
  9. TAMSULOSIN [Concomitant]
     Active Substance: TAMSULOSIN
  10. LEVEMIR [Concomitant]
     Active Substance: INSULIN DETEMIR
  11. TRAZODONE [Concomitant]
     Active Substance: TRAZODONE HYDROCHLORIDE
     Indication: INSOMNIA
  12. IBUPROFEN. [Concomitant]
     Active Substance: IBUPROFEN
  13. VRAYLAR [Concomitant]
     Active Substance: CARIPRAZINE
     Indication: BIPOLAR DISORDER
  14. INGREZZA [Suspect]
     Active Substance: VALBENAZINE
     Indication: TARDIVE DYSKINESIA
     Route: 048
     Dates: start: 20170731, end: 20170807
  15. COGENTIN [Concomitant]
     Active Substance: BENZTROPINE MESYLATE
     Indication: AKATHISIA
  16. BENZTROPINE [Concomitant]
     Active Substance: BENZTROPINE
  17. WELLBUTRIN XL [Concomitant]
     Active Substance: BUPROPION HYDROCHLORIDE
     Indication: BIPOLAR DISORDER
  18. ATORVASTATIN [Concomitant]
     Active Substance: ATORVASTATIN
  19. FINASTERIDE. [Concomitant]
     Active Substance: FINASTERIDE

REACTIONS (3)
  - Bronchitis [Unknown]
  - Pneumonia aspiration [Unknown]
  - Death [Fatal]

NARRATIVE: CASE EVENT DATE: 2017
